FAERS Safety Report 24582236 (Version 2)
Quarter: 2024Q4

REPORT INFORMATION
  Report Type: Spontaneous
  Country: US (occurrence: US)
  Receive Date: 20241105
  Receipt Date: 20241112
  Transmission Date: 20250114
  Serious: Yes (Other)
  Sender: ABBVIE
  Company Number: US-ABBVIE-5987180

PATIENT
  Age: 44 Year
  Sex: Female
  Weight: 78 kg

DRUGS (5)
  1. LILETTA [Suspect]
     Active Substance: LEVONORGESTREL
     Indication: Product used for unknown indication
     Dosage: TIME INTERVAL: AS NECESSARY
     Route: 015
     Dates: start: 20240820, end: 20241008
  2. WEGOVY [Concomitant]
     Active Substance: SEMAGLUTIDE
     Indication: Product used for unknown indication
     Dosage: LAST ADMINISTRATION 2024?1.7 MG/0.75 ML PEN INJECTOR?INJECT 0.75 MT. EVERY WEEK FOR 28 DAYS.
     Route: 058
     Dates: start: 20240606
  3. WEGOVY [Concomitant]
     Active Substance: SEMAGLUTIDE
     Indication: Product used for unknown indication
     Dosage: WEGOVY 2.4 MG/0.75 ML, PEN INJECTOR??INJECT 0.75 ML (2.4MG)
     Route: 058
     Dates: start: 20241001
  4. FLUCONAZOLE [Concomitant]
     Active Substance: FLUCONAZOLE
     Indication: Product used for unknown indication
     Route: 048
     Dates: start: 20240927
  5. METRONIDAZOLE [Concomitant]
     Active Substance: METRONIDAZOLE
     Indication: Product used for unknown indication
     Route: 067
     Dates: start: 20240927

REACTIONS (2)
  - Abnormal uterine bleeding [Unknown]
  - Device expulsion [Unknown]

NARRATIVE: CASE EVENT DATE: 20240101
